FAERS Safety Report 9729077 (Version 1)
Quarter: 2013Q4

REPORT INFORMATION
  Report Type: Spontaneous
  Country: CH (occurrence: CH)
  Receive Date: 20131204
  Receipt Date: 20131204
  Transmission Date: 20140711
  Serious: Yes (Death)
  Sender: FDA-Public Use
  Company Number: PHHY2013CH137295

PATIENT
  Age: 90 Year
  Sex: Male

DRUGS (6)
  1. SINTROM [Suspect]
     Dosage: 1 MG, QD
     Route: 048
     Dates: end: 20130817
  2. CITALOPRAM [Suspect]
     Dosage: 20 MG, QD
     Route: 048
  3. ASPIRIN CARDIO [Suspect]
     Dosage: 100 MG, QD
     Route: 048
  4. SYMFONA [Suspect]
     Dosage: 120 MG, QD
     Route: 048
  5. DUODART [Concomitant]
     Dosage: UNK UKN, UNK
     Route: 048
  6. ACIDUM FOLICUM [Concomitant]
     Dosage: 5 MG, QD
     Route: 048

REACTIONS (1)
  - Cerebral haemorrhage [Fatal]
